FAERS Safety Report 5150817-3 (Version None)
Quarter: 2006Q4

REPORT INFORMATION
  Report Type: 
  Country: None (occurrence: None)
  Receive Date: 20061114
  Receipt Date: 20061110
  Transmission Date: 20070319
  Serious: Yes (Hospitalization, Other)
  Sender: FDA-Public Use
  Company Number: US-BRISTOL-MYERS SQUIBB COMPANY-13574736

PATIENT
  Age: 85 Year
  Sex: Female
  Weight: 54 kg

DRUGS (9)
  1. ERBITUX [Suspect]
     Indication: COLORECTAL CANCER METASTATIC
     Route: 042
     Dates: start: 20061108, end: 20061108
  2. CARDIZEM [Concomitant]
  3. PROTONIX [Concomitant]
  4. FLORINEF [Concomitant]
  5. HYDROCORTISONE [Concomitant]
  6. LOVENOX [Concomitant]
  7. HYOSCYAMINE [Concomitant]
  8. BENICAR [Concomitant]
  9. BENADRYL [Concomitant]
     Indication: PREMEDICATION
     Route: 042
     Dates: start: 20061108, end: 20061108

REACTIONS (2)
  - CONFUSIONAL STATE [None]
  - HALLUCINATION [None]
